FAERS Safety Report 18611019 (Version 1)
Quarter: 2020Q4

REPORT INFORMATION
  Report Type: Spontaneous
  Country: LV (occurrence: LV)
  Receive Date: 20201214
  Receipt Date: 20201214
  Transmission Date: 20210114
  Serious: Yes (Other)
  Sender: FDA-Public Use
  Company Number: LV-MYLANLABS-2020M1100667

PATIENT
  Age: 7 Year
  Weight: 24 kg

DRUGS (1)
  1. DRIPTANE [Suspect]
     Active Substance: OXYBUTYNIN
     Indication: ENURESIS
     Dosage: 2.5 MILLIGRAM, BID
     Route: 048
     Dates: start: 20201016, end: 20201110

REACTIONS (3)
  - Affect lability [Unknown]
  - Nightmare [Unknown]
  - Crying [Unknown]

NARRATIVE: CASE EVENT DATE: 20201025
